FAERS Safety Report 9236873 (Version 3)
Quarter: 2013Q2

REPORT INFORMATION
  Report Type: Spontaneous
  Country: US (occurrence: US)
  Receive Date: 20130417
  Receipt Date: 20130617
  Transmission Date: 20140414
  Serious: Yes (Death, Other)
  Sender: FDA-Public Use
  Company Number: US201201006609

PATIENT
  Age: 44 Year
  Sex: Female

DRUGS (18)
  1. BYETTA [Suspect]
     Route: 058
  2. MS CONTIN [Concomitant]
  3. ALLEGRA [Concomitant]
  4. SINGULAIR [Concomitant]
  5. AMARYL [Concomitant]
  6. BENICAR [Concomitant]
  7. PERCOCET [Concomitant]
  8. NEXIUM [Concomitant]
  9. FLOVENT [Concomitant]
  10. ALBUTEROL [Concomitant]
  11. COLACE [Concomitant]
     Route: 048
  12. SENOKOT [Concomitant]
     Route: 048
  13. DULCOLAX [Concomitant]
     Route: 054
  14. CHEMOTHERAPY [Concomitant]
  15. GEMZAR [Concomitant]
     Dates: start: 200610
  16. OXALIPLATIN [Concomitant]
     Dates: start: 200610
  17. TARCEVA [Concomitant]
     Dates: start: 200610
  18. LEUCOVORIN [Concomitant]

REACTIONS (6)
  - Death [Fatal]
  - Pancreatic carcinoma [Unknown]
  - Metastases to liver [Not Recovered/Not Resolved]
  - Metastases to lung [Not Recovered/Not Resolved]
  - Metastatic neoplasm [Unknown]
  - Weight decreased [Unknown]
